FAERS Safety Report 8522289-X (Version None)
Quarter: 2012Q3

REPORT INFORMATION
  Report Type: 
  Country: None (occurrence: None)
  Receive Date: 20120719
  Receipt Date: 20120713
  Transmission Date: 20120928
  Serious: Yes (Other)
  Sender: FDA-Public Use
  Company Number: PHEH2012US013775

PATIENT
  Sex: Female

DRUGS (3)
  1. PRAVASTATIN [Concomitant]
     Dosage: 40 MG, DAILY
  2. EXFORGE [Suspect]
     Dosage: 1 DF (160/5MG) DAILY
     Dates: start: 20120711
  3. DIOVAN [Concomitant]
     Dosage: 160 MG, UNK

REACTIONS (4)
  - CEREBROVASCULAR ACCIDENT [None]
  - FATIGUE [None]
  - FULL BLOOD COUNT DECREASED [None]
  - DIZZINESS [None]
